FAERS Safety Report 16249316 (Version 1)
Quarter: 2019Q2

REPORT INFORMATION
  Report Type: Spontaneous
  Country: FR (occurrence: FR)
  Receive Date: 20190429
  Receipt Date: 20190429
  Transmission Date: 20190711
  Serious: Yes (Life-Threatening, Hospitalization)
  Sender: FDA-Public Use
  Company Number: FR-ACCORD-124763

PATIENT
  Age: 12 Year
  Sex: Female

DRUGS (3)
  1. ETOPOSIDE MYLAN [Suspect]
     Active Substance: ETOPOSIDE
     Indication: GERM CELL CANCER
     Route: 041
     Dates: start: 20171117, end: 20171121
  2. IFOSFAMIDE EG [Suspect]
     Active Substance: IFOSFAMIDE
     Indication: GERM CELL CANCER
     Route: 041
     Dates: start: 20171117, end: 20171119
  3. CISPLATIN ACCORD [Suspect]
     Active Substance: CISPLATIN
     Indication: GERM CELL CANCER
     Route: 041
     Dates: start: 20171117, end: 20171121

REACTIONS (3)
  - Diarrhoea [Recovered/Resolved]
  - Febrile bone marrow aplasia [Recovered/Resolved]
  - Hypovolaemic shock [Recovered/Resolved]

NARRATIVE: CASE EVENT DATE: 20171125
